FAERS Safety Report 10429856 (Version 1)
Quarter: 2014Q3

REPORT INFORMATION
  Report Type: Spontaneous
  Country: US (occurrence: None)
  Receive Date: 20140813
  Receipt Date: 20140813
  Transmission Date: 20150326
  Serious: Yes (Hospitalization)
  Sender: FDA-Public Use
  Company Number: 1280765

PATIENT
  Sex: Male

DRUGS (1)
  1. CYTOVENE [Suspect]
     Active Substance: GANCICLOVIR
     Indication: CYTOMEGALOVIRUS COLITIS
     Dosage: GIVEN OVER 1 HOUR (420 MG, 1 IN 12 HR), UNKNOWN

REACTIONS (2)
  - Weight decreased [None]
  - Incorrect dose administered [None]
